FAERS Safety Report 5240124-2 (Version None)
Quarter: 2007Q1

REPORT INFORMATION
  Report Type: 
  Country: None (occurrence: None)
  Receive Date: 20070216
  Receipt Date: 20070207
  Transmission Date: 20070707
  Serious: Yes (Death, Other)
  Sender: FDA-Public Use
  Company Number: BE-PFIZER INC-2007010819

PATIENT
  Sex: Male

DRUGS (5)
  1. LIPITOR [Suspect]
     Route: 048
  2. AMLOR [Suspect]
     Route: 048
  3. CARVEDILOL [Suspect]
  4. CORTICOSTEROIDS [Suspect]
  5. AUGMENTIN '125' [Suspect]

REACTIONS (18)
  - ACUTE RESPIRATORY DISTRESS SYNDROME [None]
  - AMMONIA INCREASED [None]
  - CONFUSIONAL STATE [None]
  - DYSPNOEA [None]
  - ENDOCARDITIS [None]
  - ERYTHEMA [None]
  - FATIGUE [None]
  - HAEMOLYTIC ANAEMIA [None]
  - HEPATIC CIRRHOSIS [None]
  - HEPATIC FAILURE [None]
  - OEDEMA PERIPHERAL [None]
  - PULMONARY ALVEOLAR HAEMORRHAGE [None]
  - RENAL FAILURE [None]
  - RHABDOMYOLYSIS [None]
  - SEPSIS [None]
  - STAPHYLOCOCCAL INFECTION [None]
  - THROMBOCYTHAEMIA [None]
  - VENOUS VALVE RUPTURED [None]
